FAERS Safety Report 22027966 (Version 1)
Quarter: 2023Q1

REPORT INFORMATION
  Report Type: Spontaneous
  Country: FR (occurrence: FR)
  Receive Date: 20230223
  Receipt Date: 20230223
  Transmission Date: 20230418
  Serious: Yes (Hospitalization)
  Sender: FDA-Public Use
  Company Number: None

PATIENT
  Age: 84 Year
  Sex: Female
  Weight: 75 kg

DRUGS (17)
  1. LEVOFLOXACIN [Suspect]
     Active Substance: LEVOFLOXACIN
     Indication: Infection
     Dosage: 1 GRAM, QD
     Route: 048
     Dates: start: 20221204, end: 20221220
  2. TRAMADOL [Suspect]
     Active Substance: TRAMADOL
     Indication: Pain
     Dosage: 200 MILLIGRAM, QD
     Route: 048
     Dates: start: 20221223, end: 20221229
  3. CEFTRIAXONE [Suspect]
     Active Substance: CEFTRIAXONE
     Indication: Infection
     Dosage: 2 GRAM, QD
     Route: 058
     Dates: start: 20221204, end: 20221220
  4. PREGABALIN [Suspect]
     Active Substance: PREGABALIN
     Indication: Pain
     Dosage: 50 MILLIGRAM, QD
     Route: 048
     Dates: start: 20221223, end: 20230102
  5. TRAMADOL HYDROCHLORIDE [Suspect]
     Active Substance: TRAMADOL HYDROCHLORIDE
     Indication: Pain
     Dosage: 200 MILLIGRAM, QD
     Route: 042
     Dates: start: 20221223, end: 20221224
  6. AMLODIPINE [Concomitant]
     Active Substance: AMLODIPINE BESYLATE
     Dosage: UNK
     Route: 065
  7. AMIODARONE [Concomitant]
     Active Substance: AMIODARONE
     Dosage: UNK
     Route: 065
  8. ATORVASTATIN [Concomitant]
     Active Substance: ATORVASTATIN
     Dosage: UNK
     Route: 065
  9. LEVOTHYROXINE [Concomitant]
     Active Substance: LEVOTHYROXINE
     Dosage: UNK
     Route: 065
  10. PERINDOPRIL [Concomitant]
     Active Substance: PERINDOPRIL
     Dosage: UNK
     Route: 065
  11. HYDROCHLOROTHIAZIDE [Concomitant]
     Active Substance: HYDROCHLOROTHIAZIDE
     Dosage: UNK
     Route: 065
  12. ACETAMINOPHEN [Concomitant]
     Active Substance: ACETAMINOPHEN
     Dosage: UNK
     Route: 065
  13. FOLIC ACID [Concomitant]
     Active Substance: FOLIC ACID
     Dosage: UNK
     Route: 065
  14. BACTRIM [Concomitant]
     Active Substance: SULFAMETHOXAZOLE\TRIMETHOPRIM
     Dosage: UNK
     Route: 065
  15. CEFOTAXIME [Concomitant]
     Active Substance: CEFOTAXIME SODIUM
     Dosage: UNK
     Route: 065
  16. FERROUS SULFATE [Concomitant]
     Active Substance: FERROUS SULFATE
     Dosage: UNK
     Route: 065
  17. POLYETHYLENE GLYCOLS [Concomitant]
     Active Substance: POLYETHYLENE GLYCOLS
     Dosage: UNK
     Route: 065

REACTIONS (4)
  - Subileus [Recovering/Resolving]
  - Tendonitis [Not Recovered/Not Resolved]
  - Hallucination, visual [Recovered/Resolved]
  - Tremor [Recovered/Resolved]

NARRATIVE: CASE EVENT DATE: 20221224
